FAERS Safety Report 17370310 (Version 1)
Quarter: 2020Q1

REPORT INFORMATION
  Report Type: Spontaneous
  Country: US (occurrence: US)
  Receive Date: 20200204
  Receipt Date: 20200204
  Transmission Date: 20200409
  Serious: Yes (Hospitalization)
  Sender: FDA-Public Use
  Company Number: None

PATIENT
  Age: 27 Year
  Sex: Female
  Weight: 83.25 kg

DRUGS (3)
  1. HALDOL [Suspect]
     Active Substance: HALOPERIDOL
     Indication: MIGRAINE
     Dosage: ?          QUANTITY:1 INJECTION(S);OTHER ROUTE:IV?
     Dates: start: 20191223, end: 20191223
  2. MAGNESIUM [Concomitant]
     Active Substance: MAGNESIUM
  3. RIZATRIPTAN 5MG [Concomitant]
     Active Substance: RIZATRIPTAN

REACTIONS (14)
  - Loss of consciousness [None]
  - Aphasia [None]
  - Disturbance in attention [None]
  - Nervousness [None]
  - Anxiety [None]
  - Asocial behaviour [None]
  - Cognitive disorder [None]
  - Nasopharyngitis [None]
  - Flat affect [None]
  - Head discomfort [None]
  - Dizziness [None]
  - Panic attack [None]
  - Joint stiffness [None]
  - Dysphagia [None]

NARRATIVE: CASE EVENT DATE: 20191223
